FAERS Safety Report 14224768 (Version 2)
Quarter: 2018Q1

REPORT INFORMATION
  Report Type: Spontaneous
  Country: US (occurrence: US)
  Receive Date: 20171127
  Receipt Date: 20180118
  Transmission Date: 20180508
  Serious: No
  Sender: FDA-Public Use
  Company Number: US-LEO PHARMA-305497

PATIENT
  Age: 69 Year
  Sex: Male

DRUGS (1)
  1. PICATO [Suspect]
     Active Substance: INGENOL MEBUTATE
     Indication: RASH
     Dosage: USED 1 TUBE AT THIS FIRST APPLICATION. 1 MONTH LATER USED THE SECOND TUBE
     Route: 061
     Dates: start: 20171118

REACTIONS (8)
  - Application site erythema [Recovered/Resolved]
  - Application site warmth [Recovered/Resolved]
  - Application site paraesthesia [Recovered/Resolved]
  - Product use in unapproved indication [Unknown]
  - Application site vesicles [Recovered/Resolved]
  - Application site exfoliation [Recovered/Resolved]
  - Application site discharge [Recovered/Resolved]
  - Application site pain [Recovered/Resolved]

NARRATIVE: CASE EVENT DATE: 20171118
